FAERS Safety Report 14800463 (Version 1)
Quarter: 2018Q2

REPORT INFORMATION
  Report Type: Spontaneous
  Country: TR (occurrence: TR)
  Receive Date: 20180424
  Receipt Date: 20180424
  Transmission Date: 20180711
  Serious: Yes (Death, Hospitalization, Other)
  Sender: FDA-Public Use
  Company Number: TR-ELI_LILLY_AND_COMPANY-TR201804007117

PATIENT
  Age: 60 Year
  Sex: Male

DRUGS (3)
  1. VITAMIN B12 [Concomitant]
     Active Substance: CYANOCOBALAMIN
     Indication: PRODUCT USED FOR UNKNOWN INDICATION
     Dosage: UNK, UNKNOWN
     Route: 065
  2. FOLIC ACID. [Concomitant]
     Active Substance: FOLIC ACID
     Indication: PRODUCT USED FOR UNKNOWN INDICATION
     Dosage: UNK, UNKNOWN
     Route: 065
  3. PEMETREXED. [Suspect]
     Active Substance: PEMETREXED
     Indication: METASTASES TO BONE
     Dosage: 800 MG, SINGLE
     Route: 042

REACTIONS (6)
  - Toxic epidermal necrolysis [Recovering/Resolving]
  - Pancytopenia [Fatal]
  - Melaena [Unknown]
  - Altered state of consciousness [Unknown]
  - Sepsis [Fatal]
  - Off label use [Unknown]
